FAERS Safety Report 24431336 (Version 1)
Quarter: 2024Q4

REPORT INFORMATION
  Report Type: Spontaneous
  Country: CN (occurrence: CN)
  Receive Date: 20241014
  Receipt Date: 20241014
  Transmission Date: 20250115
  Serious: Yes (Hospitalization)
  Sender: GE HEALTHCARE
  Company Number: CN-GE HEALTHCARE-2024CSU011231

PATIENT
  Age: 37 Year
  Sex: Female

DRUGS (1)
  1. OMNIPAQUE [Suspect]
     Active Substance: IOHEXOL
     Indication: Computerised tomogram heart
     Dosage: 35 GM, TOTAL
     Route: 041
     Dates: start: 20240907, end: 20240907

REACTIONS (8)
  - Choking sensation [Recovering/Resolving]
  - Dysphonia [Recovering/Resolving]
  - Tonsillar hypertrophy [Recovering/Resolving]
  - Tonsillar erythema [Recovering/Resolving]
  - Sensation of foreign body [Recovering/Resolving]
  - Conjunctival hyperaemia [Recovering/Resolving]
  - Cough [Recovering/Resolving]
  - Contrast media allergy [Recovering/Resolving]

NARRATIVE: CASE EVENT DATE: 20240907
